FAERS Safety Report 8953874 (Version 1)
Quarter: 2012Q4

REPORT INFORMATION
  Report Type: 
  Country: DE (occurrence: DE)
  Receive Date: 20121206
  Receipt Date: 20121206
  Transmission Date: 20130627
  Serious: Yes (Hospitalization)
  Sender: FDA-Public Use
  Company Number: DE-WATSON-2012-20780

PATIENT
  Age: 82 Year
  Sex: Female

DRUGS (8)
  1. CIPROFLOXACIN HYDROCHLORIDE (UNKNOWN) [Suspect]
     Indication: PRODUCT USED FOR UNKNOWN INDICATION
     Dosage: 500 mg, daily
     Route: 048
     Dates: start: 20120627, end: 20120701
  2. CYMBALTA [Suspect]
     Indication: PRODUCT USED FOR UNKNOWN INDICATION
     Dosage: 60 mg, daily
     Route: 048
     Dates: start: 20120701, end: 20120702
  3. CYMBALTA [Suspect]
     Dosage: 30 mg, daily
     Route: 048
     Dates: start: 20120627, end: 20120630
  4. HALDOL [Suspect]
     Indication: PRODUCT USED FOR UNKNOWN INDICATION
     Dosage: 0.5 mg, daily
     Route: 048
     Dates: start: 20120629, end: 20120701
  5. SPASMEX [Concomitant]
     Indication: PRODUCT USED FOR UNKNOWN INDICATION
     Dosage: 15 mg, daily
     Route: 048
     Dates: start: 20120702
  6. SPASMEX                            /00376202/ [Concomitant]
     Dosage: 30 mg, daily
     Route: 048
     Dates: start: 20120627, end: 20120701
  7. CONCOR [Concomitant]
     Indication: PRODUCT USED FOR UNKNOWN INDICATION
     Dosage: 5 mg, daily
     Route: 048
     Dates: start: 20120627
  8. VIGANTOLETTEN [Concomitant]
     Indication: PRODUCT USED FOR UNKNOWN INDICATION
     Dosage: 1000 mg, daily
     Route: 048
     Dates: start: 20120627

REACTIONS (1)
  - Hyponatraemia [Recovered/Resolved]
